FAERS Safety Report 12637513 (Version 1)
Quarter: 2016Q3

REPORT INFORMATION
  Report Type: Spontaneous
  Country: US (occurrence: US)
  Receive Date: 20160809
  Receipt Date: 20160809
  Transmission Date: 20161109
  Serious: Yes (Life-Threatening, Hospitalization, Other)
  Sender: FDA-Public Use
  Company Number: US-APOTEX-2016AP010199

PATIENT
  Age: 66 Year
  Sex: Male

DRUGS (10)
  1. LIDOCAINE. [Concomitant]
     Active Substance: LIDOCAINE
     Indication: INDUCTION OF ANAESTHESIA
     Route: 065
  2. SUFENTANIL [Concomitant]
     Active Substance: SUFENTANIL
     Indication: GENERAL ANAESTHESIA
     Dosage: UNK, UNKNOWN
     Route: 065
  3. PROPOFOL. [Concomitant]
     Active Substance: PROPOFOL
     Indication: INDUCTION OF ANAESTHESIA
     Route: 065
  4. PROPOFOL. [Concomitant]
     Active Substance: PROPOFOL
     Indication: GENERAL ANAESTHESIA
     Route: 065
  5. TRANEXAMIC ACID TABLETS [Suspect]
     Active Substance: TRANEXAMIC ACID
     Indication: SPINAL FUSION SURGERY
     Dosage: 1G BOLUS
     Route: 065
  6. MIDAZOLAM [Concomitant]
     Active Substance: MIDAZOLAM\MIDAZOLAM HYDROCHLORIDE
     Indication: INDUCTION OF ANAESTHESIA
     Route: 065
  7. FENTANYL. [Concomitant]
     Active Substance: FENTANYL
     Indication: INDUCTION OF ANAESTHESIA
     Dosage: UNK, UNKNOWN
     Route: 065
  8. TRANEXAMIC ACID TABLETS [Suspect]
     Active Substance: TRANEXAMIC ACID
     Dosage: 1 MG/KG/HR
     Route: 065
  9. ALBUMIN [Concomitant]
     Active Substance: ALBUMIN HUMAN
     Indication: POST PROCEDURAL HAEMORRHAGE
     Dosage: UNK, UNKNOWN
     Route: 065
  10. DESFLURANE. [Concomitant]
     Active Substance: DESFLURANE
     Indication: GENERAL ANAESTHESIA
     Route: 065

REACTIONS (3)
  - Cardiac ventricular thrombosis [Not Recovered/Not Resolved]
  - Post procedural myocardial infarction [Recovered/Resolved with Sequelae]
  - Acute myocardial infarction [Recovered/Resolved with Sequelae]
